FAERS Safety Report 4685245-8 (Version None)
Quarter: 2005Q2

REPORT INFORMATION
  Report Type: 
  Country: None (occurrence: None)
  Receive Date: 20050603
  Receipt Date: 20050520
  Transmission Date: 20051028
  Serious: Yes (Hospitalization, Other)
  Sender: FDA-Public Use
  Company Number: 214045

PATIENT
  Age: 52 Year
  Sex: Female
  Weight: 75 kg

DRUGS (5)
  1. MABTHERA(RITUXIMAB) CONC FOR INFUSION [Suspect]
     Indication: NON-HODGKIN'S LYMPHOMA
     Dosage: 675 MG, INTRAVENOUS
     Route: 042
     Dates: end: 20050104
  2. DOXORUBICIN (DOXORUBICIN, DOXORUBICIN HYDROCHLORIDE) [Concomitant]
  3. CYCLOPHOSPHAMIDE [Concomitant]
  4. ETOPOSIDE [Concomitant]
  5. PREDNISONE [Concomitant]

REACTIONS (1)
  - HEPATITIS [None]
